FAERS Safety Report 5227016-X (Version None)
Quarter: 2007Q1

REPORT INFORMATION
  Report Type: 
  Country: None (occurrence: None)
  Receive Date: 20070201
  Receipt Date: 20070201
  Transmission Date: 20070707
  Serious: Yes (Other)
  Sender: FDA-Public Use
  Company Number: None

PATIENT
  Age: 41 Year
  Sex: Female
  Weight: 60.782 kg

DRUGS (1)
  1. OPTIRAY 350 [Suspect]
     Indication: ABDOMINAL PAIN
     Dosage: 100CC 2CC/SEC

REACTIONS (1)
  - URTICARIA [None]
